FAERS Safety Report 15231139 (Version 1)
Quarter: 2018Q3

REPORT INFORMATION
  Report Type: Spontaneous
  Country: US (occurrence: US)
  Receive Date: 20180802
  Receipt Date: 20180802
  Transmission Date: 20181010
  Serious: No
  Sender: FDA-Public Use
  Company Number: US-VERTEX PHARMACEUTICALS-2018-005369

PATIENT
  Age: 32 Year
  Sex: Male
  Weight: 59 kg

DRUGS (1)
  1. ORKAMBI [Suspect]
     Active Substance: IVACAFTOR\LUMACAFTOR
     Indication: CYSTIC FIBROSIS
     Dosage: 200/125 MG, BID
     Route: 048
     Dates: start: 201512

REACTIONS (2)
  - Chest discomfort [Recovered/Resolved]
  - Hepatic enzyme abnormal [Recovered/Resolved]

NARRATIVE: CASE EVENT DATE: 201512
